FAERS Safety Report 19734047 (Version 2)
Quarter: 2021Q4

REPORT INFORMATION
  Report Type: Spontaneous
  Country: BR (occurrence: BR)
  Receive Date: 20210823
  Receipt Date: 20211220
  Transmission Date: 20220303
  Serious: Yes (Hospitalization, Other)
  Sender: FDA-Public Use
  Company Number: BR-GSKCCFAMERS-CASE-01138839_AE-66981

PATIENT
  Sex: Female

DRUGS (2)
  1. ALBUTEROL [Suspect]
     Active Substance: ALBUTEROL
     Indication: Muscular weakness
     Dosage: UNK, TID, UNK, SHE CURRENTLY TAKES AEROLIN 15ML IN THE MORNING, 10ML IN THE AFTERNOON AND 10ML AT NI
     Dates: start: 2021
  2. AMIODARONE [Concomitant]
     Active Substance: AMIODARONE
     Indication: Product used for unknown indication
     Dosage: UNK

REACTIONS (10)
  - Hospitalisation [Unknown]
  - Endotracheal intubation [Unknown]
  - Pneumonia [Recovered/Resolved]
  - Sputum discoloured [Unknown]
  - Skin disorder [Unknown]
  - Movement disorder [Unknown]
  - Drug effective for unapproved indication [Unknown]
  - Product use in unapproved indication [Unknown]
  - Off label use [Unknown]
  - Incorrect dose administered [Unknown]

NARRATIVE: CASE EVENT DATE: 20210101
